FAERS Safety Report 10620111 (Version 7)
Quarter: 2016Q1

REPORT INFORMATION
  Report Type: Report from Study
  Country: US (occurrence: US)
  Receive Date: 20141202
  Receipt Date: 20160307
  Transmission Date: 20160525
  Serious: Yes (Hospitalization, Other)
  Sender: FDA-Public Use
  Company Number: US-SA-2014SA111164

PATIENT
  Age: 28 Year
  Sex: Female

DRUGS (6)
  1. AUBAGIO [Suspect]
     Active Substance: TERIFLUNOMIDE
     Indication: SECONDARY PROGRESSIVE MULTIPLE SCLEROSIS
     Dosage: 7 AND 14MG
     Route: 048
     Dates: start: 20140807, end: 201507
  2. NEURONTIN [Concomitant]
     Active Substance: GABAPENTIN
     Indication: HYPOAESTHESIA
  3. TECFIDERA [Suspect]
     Active Substance: DIMETHYL FUMARATE
     Indication: MULTIPLE SCLEROSIS
     Route: 065
     Dates: start: 20140807
  4. ZOFRAN [Concomitant]
     Active Substance: ONDANSETRON HYDROCHLORIDE
  5. AUBAGIO [Suspect]
     Active Substance: TERIFLUNOMIDE
     Indication: SECONDARY PROGRESSIVE MULTIPLE SCLEROSIS
     Dosage: 7 AND 14MG
     Route: 048
  6. NEURONTIN [Concomitant]
     Active Substance: GABAPENTIN
     Indication: MUSCLE SPASMS

REACTIONS (18)
  - Dyspnoea [Unknown]
  - Musculoskeletal stiffness [Unknown]
  - Unevaluable event [Unknown]
  - Multiple sclerosis relapse [Not Recovered/Not Resolved]
  - Feeling cold [Unknown]
  - Tremor [Unknown]
  - Headache [Unknown]
  - Paraesthesia [Unknown]
  - Stress [Unknown]
  - Pain [Unknown]
  - Hot flush [Recovered/Resolved]
  - Back disorder [Not Recovered/Not Resolved]
  - Migraine [Not Recovered/Not Resolved]
  - Loss of consciousness [Unknown]
  - Obsessive-compulsive disorder [Unknown]
  - Fatigue [Unknown]
  - Insomnia [Unknown]
  - Hypoaesthesia [Unknown]

NARRATIVE: CASE EVENT DATE: 20140810
